FAERS Safety Report 8921929 (Version 1)
Quarter: 2012Q4

REPORT INFORMATION
  Report Type: Spontaneous
  Country: US (occurrence: None)
  Receive Date: 20121119
  Receipt Date: 20121119
  Transmission Date: 20130627
  Serious: Yes (Other)
  Sender: FDA-Public Use
  Company Number: None

PATIENT
  Age: 40 Year
  Sex: Male
  Weight: 120.2 kg

DRUGS (1)
  1. CIPROFLOXACIN [Suspect]
     Dosage: twice per day
     Route: 048
     Dates: start: 20121109, end: 20121112

REACTIONS (7)
  - Panic attack [None]
  - Anxiety [None]
  - Myalgia [None]
  - Arthralgia [None]
  - Tendon pain [None]
  - Paraesthesia [None]
  - Hypoaesthesia [None]
